FAERS Safety Report 10262959 (Version 2)
Quarter: 2014Q2

REPORT INFORMATION
  Report Type: Report from Study
  Country: US (occurrence: US)
  Receive Date: 20140626
  Receipt Date: 20140626
  Transmission Date: 20141212
  Serious: Yes (Death)
  Sender: FDA-Public Use
  Company Number: US-MYLANLABS-2013S1024061

PATIENT
  Age: 42 Year
  Sex: Female
  Weight: 75.3 kg

DRUGS (9)
  1. CLOZAPINE [Suspect]
     Indication: SCHIZOAFFECTIVE DISORDER
     Route: 048
     Dates: end: 2013
  2. ASPIRIN [Concomitant]
     Route: 048
  3. CLONAZEPAM [Concomitant]
     Route: 048
  4. DOCUSATE [Concomitant]
     Route: 048
  5. FERROUS SULFATE [Concomitant]
     Route: 048
  6. LOVASTATIN [Concomitant]
     Route: 048
  7. LUTERA [Concomitant]
     Route: 048
  8. PAROXETINE [Concomitant]
     Route: 048
  9. QUETIAPINE [Concomitant]
     Route: 048

REACTIONS (8)
  - Enterococcal sepsis [Fatal]
  - Escherichia infection [Fatal]
  - Cholecystitis [Fatal]
  - Bile duct obstruction [Fatal]
  - Syncope [Fatal]
  - Unresponsive to stimuli [Fatal]
  - Abdominal pain [Unknown]
  - Constipation [Unknown]
